FAERS Safety Report 6482317-2 (Version None)
Quarter: 2009Q4

REPORT INFORMATION
  Report Type: 
  Country: None (occurrence: None)
  Receive Date: 20091208
  Receipt Date: 20090514
  Transmission Date: 20100525
  Serious: No
  Sender: FDA-Public Use
  Company Number: US-AMGEN-TCS338655

PATIENT
  Sex: Female
  Weight: 77.6 kg

DRUGS (6)
  1. ENBREL [Suspect]
     Indication: ANKYLOSING SPONDYLITIS
     Route: 058
     Dates: start: 20090301, end: 20090301
  2. ROBAXIN [Concomitant]
     Dates: start: 20070101
  3. GABAPENTIN [Concomitant]
     Dates: start: 20090101
  4. DILAUDID [Concomitant]
     Dates: start: 20070101
  5. LEFLUNOMIDE [Concomitant]
     Route: 048
     Dates: start: 20090203
  6. ESOMEPRAZOLE [Concomitant]

REACTIONS (13)
  - DRUG INEFFECTIVE [None]
  - FATIGUE [None]
  - HEADACHE [None]
  - INFLUENZA LIKE ILLNESS [None]
  - INJECTION SITE ERYTHEMA [None]
  - INJECTION SITE HAEMATOMA [None]
  - INJECTION SITE PAIN [None]
  - INJECTION SITE RASH [None]
  - INJECTION SITE RECALL REACTION [None]
  - INJECTION SITE SWELLING [None]
  - RASH GENERALISED [None]
  - SWELLING FACE [None]
  - URTICARIA [None]
